FAERS Safety Report 13571298 (Version 3)
Quarter: 2017Q4

REPORT INFORMATION
  Report Type: Report from Study
  Country: US (occurrence: US)
  Receive Date: 20170523
  Receipt Date: 20171018
  Transmission Date: 20180320
  Serious: Yes (Other)
  Sender: FDA-Public Use
  Company Number: PHEH2017US015191

PATIENT
  Sex: Male

DRUGS (1)
  1. ENTRESTO [Suspect]
     Active Substance: SACUBITRIL\VALSARTAN
     Indication: PRODUCT USED FOR UNKNOWN INDICATION
     Dosage: 1 DF(49/51MG), BID
     Route: 065

REACTIONS (5)
  - Pneumonia [Unknown]
  - Arthropathy [Unknown]
  - Dyspnoea [Unknown]
  - Malaise [Unknown]
  - Gait disturbance [Unknown]
